FAERS Safety Report 7769165-8 (Version None)
Quarter: 2011Q3

REPORT INFORMATION
  Report Type: 
  Country: None (occurrence: None)
  Receive Date: 20110922
  Receipt Date: 20110909
  Transmission Date: 20111222
  Serious: Yes (Other)
  Sender: FDA-Public Use
  Company Number: JP-ELI_LILLY_AND_COMPANY-JP201106002334

PATIENT
  Age: 61 Year
  Sex: Female

DRUGS (2)
  1. FORTEO [Suspect]
     Dosage: UNK
     Route: 058
     Dates: start: 20110527, end: 20110801
  2. PREDNISOLONE [Concomitant]
     Route: 048

REACTIONS (3)
  - INJECTION SITE ERYTHEMA [None]
  - PARAESTHESIA [None]
  - HAND FRACTURE [None]
